FAERS Safety Report 26158813 (Version 2)
Quarter: 2025Q4

REPORT INFORMATION
  Report Type: Spontaneous
  Country: JP (occurrence: JP)
  Receive Date: 20251215
  Receipt Date: 20251228
  Transmission Date: 20260117
  Serious: Yes (Hospitalization, Other)
  Sender: GLAXOSMITHKLINE
  Company Number: JP-GSK-JP2025JPN158480

PATIENT
  Age: 32 Year
  Sex: Female

DRUGS (1)
  1. LAMICTAL [Suspect]
     Active Substance: LAMOTRIGINE
     Indication: Epilepsy
     Dosage: UNK

REACTIONS (12)
  - Acute kidney injury [Recovering/Resolving]
  - Haemophagocytic lymphohistiocytosis [Unknown]
  - Nephropathy toxic [Recovering/Resolving]
  - Anuria [Recovering/Resolving]
  - Tubulointerstitial nephritis [Unknown]
  - Pyrexia [Unknown]
  - Vomiting [Unknown]
  - Nausea [Unknown]
  - Headache [Unknown]
  - Kidney enlargement [Unknown]
  - Splenomegaly [Unknown]
  - Lymphocytic infiltration [Unknown]

NARRATIVE: CASE EVENT DATE: 20240101
